FAERS Safety Report 5430880-2 (Version None)
Quarter: 2007Q3

REPORT INFORMATION
  Report Type: 
  Country: None (occurrence: None)
  Receive Date: 20070830
  Receipt Date: 20070105
  Transmission Date: 20080115
  Serious: No
  Sender: FDA-Public Use
  Company Number: A0634467A

PATIENT
  Sex: Male

DRUGS (4)
  1. WELLBUTRIN XL [Suspect]
     Indication: DEPRESSION
     Route: 048
     Dates: start: 20061117
  2. CRESTOR [Concomitant]
  3. SYNTHROID [Concomitant]
  4. INDERAL LA [Concomitant]

REACTIONS (3)
  - DYSURIA [None]
  - POLLAKIURIA [None]
  - TINNITUS [None]
